FAERS Safety Report 8080472-4 (Version None)
Quarter: 2012Q1

REPORT INFORMATION
  Report Type: 
  Country: None (occurrence: None)
  Receive Date: 20120130
  Receipt Date: 20120118
  Transmission Date: 20120608
  Serious: Yes (Other)
  Sender: FDA-Public Use
  Company Number: JP-TEVA-2011006289

PATIENT
  Sex: Female
  Weight: 50.5 kg

DRUGS (8)
  1. APREPITANT [Concomitant]
  2. LANSOPRAZOLE [Concomitant]
     Dates: start: 20111024
  3. DEXAMETHASONE SODIUM PHOSPHATE [Concomitant]
     Dates: start: 20110914
  4. BENDAMUSTINE [Suspect]
     Indication: B-CELL LYMPHOMA
     Route: 042
     Dates: start: 20110914
  5. GRANISETRON HCL [Concomitant]
  6. URSODIOL [Concomitant]
  7. TEPRENONE [Concomitant]
     Dates: start: 20110930
  8. FLUCONAZOLE [Concomitant]
     Dates: start: 20111105

REACTIONS (1)
  - DEEP VEIN THROMBOSIS [None]
